FAERS Safety Report 13932498 (Version 1)
Quarter: 2017Q3

REPORT INFORMATION
  Report Type: Spontaneous
  Country: CA (occurrence: CA)
  Receive Date: 20170904
  Receipt Date: 20170904
  Transmission Date: 20171127
  Serious: Yes (Other)
  Sender: FDA-Public Use
  Company Number: CA-ROCHE-1987164

PATIENT
  Sex: Male

DRUGS (2)
  1. XOLAIR [Suspect]
     Active Substance: OMALIZUMAB
     Indication: LUNG INFECTION
  2. XOLAIR [Suspect]
     Active Substance: OMALIZUMAB
     Indication: POLYP
     Route: 065

REACTIONS (3)
  - Product use in unapproved indication [Unknown]
  - Neurogenic bladder [Unknown]
  - Eye disorder [Unknown]
